FAERS Safety Report 12685010 (Version 1)
Quarter: 2016Q3

REPORT INFORMATION
  Report Type: Spontaneous
  Country: DE (occurrence: DE)
  Receive Date: 20160825
  Receipt Date: 20160825
  Transmission Date: 20161109
  Serious: Yes (Other)
  Sender: FDA-Public Use
  Company Number: PHHY2016DE116790

PATIENT
  Sex: Female

DRUGS (2)
  1. CEFURAX [Interacting]
     Active Substance: CEFUROXIME AXETIL
     Indication: LYME DISEASE
     Dosage: UNK
     Route: 065
     Dates: start: 20160819
  2. RITALIN LA [Suspect]
     Active Substance: METHYLPHENIDATE HYDROCHLORIDE
     Indication: PRODUCT USED FOR UNKNOWN INDICATION
     Dosage: 70 MG, QD (40 MG IN THE MORNING AND 30 MG IN THE AFTERNOON)
     Route: 065
     Dates: start: 2014

REACTIONS (3)
  - Lyme disease [Unknown]
  - Drug ineffective [Unknown]
  - Drug interaction [Unknown]

NARRATIVE: CASE EVENT DATE: 20160821
